FAERS Safety Report 8933775 (Version 1)
Quarter: 2012Q4

REPORT INFORMATION
  Report Type: 
  Country: CA (occurrence: CA)
  Receive Date: 20121129
  Receipt Date: 20121129
  Transmission Date: 20130627
  Serious: Yes (Other)
  Sender: FDA-Public Use
  Company Number: CA-ASTRAZENECA-2012SE88069

PATIENT
  Age: 68 Year
  Sex: Male
  Weight: 77.1 kg

DRUGS (5)
  1. CRESTOR [Suspect]
     Route: 048
  2. HUMULIN [Concomitant]
     Route: 030
  3. MICARDIS [Concomitant]
  4. NORVASC [Concomitant]
  5. ZESTRIL [Concomitant]
     Route: 048

REACTIONS (3)
  - Conjunctival deposit [Not Recovered/Not Resolved]
  - Vision blurred [Not Recovered/Not Resolved]
  - Hypersensitivity [Not Recovered/Not Resolved]
